FAERS Safety Report 12289544 (Version 1)
Quarter: 2016Q2

REPORT INFORMATION
  Report Type: Spontaneous
  Country: US (occurrence: None)
  Receive Date: 20160420
  Receipt Date: 20160420
  Transmission Date: 20160815
  Serious: Yes (Other)
  Sender: FDA-Public Use
  Company Number: None

PATIENT
  Sex: Female
  Weight: 46.72 kg

DRUGS (1)
  1. H.P. ACTHAR [Suspect]
     Active Substance: CORTICOTROPIN
     Indication: PRODUCT USED FOR UNKNOWN INDICATION
     Dosage: 80 UNIT 2X WEEKLY SUBCUTANEOUSLY
     Route: 058
     Dates: start: 201604

REACTIONS (4)
  - Muscle spasms [None]
  - Decreased appetite [None]
  - Weight decreased [None]
  - Nausea [None]
